FAERS Safety Report 14647472 (Version 4)
Quarter: 2020Q2

REPORT INFORMATION
  Report Type: Spontaneous
  Country: DE (occurrence: DE)
  Receive Date: 20180316
  Receipt Date: 20200511
  Transmission Date: 20200713
  Serious: Yes (Hospitalization, Other)
  Sender: FDA-Public Use
  Company Number: PHHY2016DE186226

PATIENT
  Age: 25 Year
  Sex: Female
  Weight: 70 kg

DRUGS (11)
  1. METHYLPREDNISOLONE. [Suspect]
     Active Substance: METHYLPREDNISOLONE
     Dosage: 100 MG,UNK
     Route: 065
     Dates: start: 201608
  2. ALEMTUZUMAB [Suspect]
     Active Substance: ALEMTUZUMAB
     Dosage: 12 MG, QD
     Route: 065
     Dates: start: 201603, end: 201603
  3. LEMTRADA [Suspect]
     Active Substance: ALEMTUZUMAB
     Dosage: 12 MG, QD
     Route: 041
     Dates: start: 201603
  4. ALEMTUZUMAB [Suspect]
     Active Substance: ALEMTUZUMAB
     Indication: MULTIPLE SCLEROSIS
     Dosage: 12 MG, QD (12 MG, QD)
     Route: 065
     Dates: start: 20150603, end: 20150607
  5. COLECALCIFEROL [Concomitant]
     Active Substance: CHOLECALCIFEROL
     Indication: PRODUCT USED FOR UNKNOWN INDICATION
     Dosage: FREQUENCY: WEEKLY /DAILY
     Route: 048
  6. SATIVEX [Concomitant]
     Active Substance: NABIXIMOLS
     Dosage: FREQUENCY: 3X AEROSOL
     Route: 048
     Dates: end: 201609
  7. SATIVEX [Concomitant]
     Active Substance: NABIXIMOLS
     Indication: MULTIPLE SCLEROSIS
     Dosage: (3X AEROSOL)1 DF, TID
     Route: 048
  8. LEMTRADA [Suspect]
     Active Substance: ALEMTUZUMAB
     Indication: MULTIPLE SCLEROSIS
     Dosage: 12 MG, QD
     Route: 041
     Dates: start: 20150603, end: 20150607
  9. METHYLPREDNISOLONE. [Suspect]
     Active Substance: METHYLPREDNISOLONE
     Indication: PRODUCT USED FOR UNKNOWN INDICATION
     Dosage: 1000 MG,QD
     Route: 065
     Dates: start: 201604, end: 201604
  10. METHYLPREDNISOLONE. [Suspect]
     Active Substance: METHYLPREDNISOLONE
     Dosage: 100 MG, UNK
     Route: 065
  11. VIGANTOL [Concomitant]
     Indication: MULTIPLE SCLEROSIS
     Dosage: UNK, QW
     Route: 048

REACTIONS (70)
  - Magnetic resonance imaging abnormal [Unknown]
  - Gingival bleeding [Recovering/Resolving]
  - Muscle spasticity [Not Recovered/Not Resolved]
  - Thyroxine free increased [Unknown]
  - CD4/CD8 ratio increased [Unknown]
  - Contusion [Recovering/Resolving]
  - Vision blurred [Unknown]
  - Emotional disorder [Unknown]
  - Micturition urgency [Unknown]
  - Sensory loss [Recovering/Resolving]
  - Pollakiuria [Unknown]
  - Lhermitte^s sign [Unknown]
  - Hypoaesthesia oral [Unknown]
  - Cough [Unknown]
  - Visual impairment [Unknown]
  - B-lymphocyte count increased [Unknown]
  - Hyperaesthesia [Unknown]
  - Ataxia [Not Recovered/Not Resolved]
  - Pain in extremity [Recovering/Resolving]
  - Dysphagia [Recovering/Resolving]
  - Neuralgia [Unknown]
  - Fatigue [Recovering/Resolving]
  - Dyskinesia [Unknown]
  - Prothrombin time prolonged [Not Recovered/Not Resolved]
  - Natural killer cell count increased [Unknown]
  - T-lymphocyte count decreased [Unknown]
  - Cold sweat [Unknown]
  - Spinal pain [Unknown]
  - Cystitis [Recovering/Resolving]
  - Photopsia [Unknown]
  - Hypersomnia [Unknown]
  - Sensory disturbance [Recovering/Resolving]
  - Condition aggravated [Recovering/Resolving]
  - Temperature intolerance [Unknown]
  - Balance disorder [Recovering/Resolving]
  - Palpitations [Unknown]
  - Arrhythmia [Recovering/Resolving]
  - Haemoptysis [Unknown]
  - Hot flush [Unknown]
  - Back pain [Unknown]
  - Muscle spasms [Not Recovered/Not Resolved]
  - Blood thyroid stimulating hormone decreased [Unknown]
  - Magnetic resonance imaging abnormal [Recovering/Resolving]
  - Nasopharyngitis [Unknown]
  - Multiple sclerosis relapse [Not Recovered/Not Resolved]
  - Drug ineffective [Unknown]
  - Frequent bowel movements [Unknown]
  - Epistaxis [Not Recovered/Not Resolved]
  - Muscle spasticity [Recovering/Resolving]
  - Gait disturbance [Unknown]
  - Muscular weakness [Unknown]
  - CD8 lymphocytes decreased [Unknown]
  - Tri-iodothyronine free increased [Unknown]
  - Rash erythematous [Recovered/Resolved]
  - Haematoma [Unknown]
  - Micturition disorder [Unknown]
  - Vertigo [Unknown]
  - Vomiting [Unknown]
  - Hemiplegia [Recovering/Resolving]
  - Hiccups [Not Recovered/Not Resolved]
  - Alopecia [Unknown]
  - Arthralgia [Unknown]
  - Lymphocyte percentage decreased [Unknown]
  - Arrhythmia [Not Recovered/Not Resolved]
  - Paraesthesia [Recovering/Resolving]
  - Musculoskeletal pain [Unknown]
  - Asthenia [Unknown]
  - Hyperthyroidism [Unknown]
  - Haemorrhagic diathesis [Unknown]
  - CD4 lymphocytes decreased [Unknown]

NARRATIVE: CASE EVENT DATE: 2016
